FAERS Safety Report 11433876 (Version 1)
Quarter: 2015Q3

REPORT INFORMATION
  Report Type: Report from Study
  Country: US (occurrence: US)
  Receive Date: 20150831
  Receipt Date: 20150831
  Transmission Date: 20151125
  Serious: Yes (Other)
  Sender: FDA-Public Use
  Company Number: US-BAXALTA-2015BLT001344

PATIENT
  Sex: Female

DRUGS (1)
  1. IMMUNOGLOBULIN, NORMAL HUMAN [Suspect]
     Active Substance: HUMAN IMMUNOGLOBULIN G
     Indication: PRIMARY IMMUNODEFICIENCY SYNDROME
     Route: 042

REACTIONS (5)
  - Flushing [Not Recovered/Not Resolved]
  - Erythema [Not Recovered/Not Resolved]
  - Fluid retention [Not Recovered/Not Resolved]
  - Cervix carcinoma [Not Recovered/Not Resolved]
  - Hyperhidrosis [Not Recovered/Not Resolved]
